FAERS Safety Report 9523875 (Version 1)
Quarter: 2013Q1

REPORT INFORMATION
  Report Type: Spontaneous
  Country: US (occurrence: None)
  Receive Date: 20130305
  Receipt Date: 20130305
  Transmission Date: 20140127
  Serious: Yes (Hospitalization)
  Sender: FDA-Public Use
  Company Number: 163-21880-12031736

PATIENT
  Age: 62 Year
  Sex: Male
  Weight: 101.61 kg

DRUGS (12)
  1. REVLIMID (LENALIDOMIDE) (15 MILLIGRAM, CAPSULES) [Suspect]
     Indication: PLASMA CELL MYELOMA
     Route: 048
     Dates: start: 20120116
  2. VELCADE (BORTEZOMIB) [Suspect]
     Indication: PRODUCT USED FOR UNKNOWN INDICATION
  3. ACYCLOVIR (ACICLOVIR) (ACICLOVIR) [Concomitant]
  4. ASPIRIN (ACETYLSALICYLIC ACID) [Concomitant]
  5. DECADRON (DEXAMETHASONE) [Concomitant]
  6. DULERA (DULERA) [Concomitant]
  7. MELATONIN (MELATONIN) [Concomitant]
  8. OMEPRAZOLE (OMEPRAZOLE) [Concomitant]
  9. SENOKOT (SENNA FRUIT) [Concomitant]
  10. SIMVASTATIN (SIMVASTATIN) [Concomitant]
  11. ZOFRAN (ONDANSETRON HYDROCHLORIDE) [Concomitant]
  12. DILTIAZEM (DILTIAZEM) [Concomitant]

REACTIONS (1)
  - Orthostatic hypotension [None]
